FAERS Safety Report 8595047-8 (Version None)
Quarter: 2012Q3

REPORT INFORMATION
  Report Type: 
  Country: None (occurrence: None)
  Receive Date: 20120815
  Receipt Date: 20120806
  Transmission Date: 20120928
  Serious: Yes (Death, Hospitalization, Other)
  Sender: FDA-Public Use
  Company Number: JP-PFIZER INC-2012197355

PATIENT
  Age: 77 Year
  Sex: Male

DRUGS (9)
  1. PLAVIX [Suspect]
     Indication: ANGINA PECTORIS
     Dosage: UNK
     Route: 048
     Dates: start: 20120604, end: 20120611
  2. AMIODARONE HYDROCHLORIDE [Suspect]
     Indication: PRODUCT USED FOR UNKNOWN INDICATION
     Dosage: UNK
     Route: 065
  3. SIGMART [Concomitant]
     Dosage: UNK
  4. RABEPRAZOLE SODIUM [Concomitant]
     Dosage: UNK
  5. WARFARIN [Concomitant]
     Dosage: UNK
  6. MEXIRATE [Concomitant]
     Dosage: UNK
  7. MEROPENEM [Suspect]
     Indication: PRODUCT USED FOR UNKNOWN INDICATION
     Dosage: UNK
     Route: 065
  8. TICLOPIDINE HCL [Suspect]
     Indication: ANGINA PECTORIS
     Dosage: UNK
     Route: 048
     Dates: start: 20120313, end: 20120604
  9. PLETAL [Concomitant]
     Dosage: UNK

REACTIONS (3)
  - LIVER DISORDER [None]
  - NEUTROPENIA [None]
  - OXYGEN SATURATION DECREASED [None]
